FAERS Safety Report 7369208-X (Version None)
Quarter: 2011Q1

REPORT INFORMATION
  Report Type: 
  Country: None (occurrence: None)
  Receive Date: 20110323
  Receipt Date: 20110311
  Transmission Date: 20110831
  Serious: Yes (Other)
  Sender: FDA-Public Use
  Company Number: US-ROCHE-765495

PATIENT
  Sex: Male

DRUGS (1)
  1. ACCUTANE [Suspect]
     Indication: ACNE
     Route: 065
     Dates: start: 20010101

REACTIONS (4)
  - INFLAMMATORY BOWEL DISEASE [None]
  - SMALL INTESTINAL OBSTRUCTION [None]
  - CROHN'S DISEASE [None]
  - GASTROINTESTINAL STENOSIS [None]
